FAERS Safety Report 6907282-2 (Version None)
Quarter: 2010Q3

REPORT INFORMATION
  Report Type: 
  Country: None (occurrence: None)
  Receive Date: 20100730
  Receipt Date: 20100722
  Transmission Date: 20110219
  Serious: Yes (Hospitalization)
  Sender: FDA-Public Use
  Company Number: 016056

PATIENT
  Age: 25 Year
  Sex: Male

DRUGS (1)
  1. KEPPRA [Suspect]
     Dates: start: 20100717

REACTIONS (1)
  - RHABDOMYOLYSIS [None]
